FAERS Safety Report 9937925 (Version 1)
Quarter: 2014Q1

REPORT INFORMATION
  Report Type: Spontaneous
  Country: AU (occurrence: AU)
  Receive Date: 20140303
  Receipt Date: 20140303
  Transmission Date: 20141002
  Serious: Yes (Other)
  Sender: FDA-Public Use
  Company Number: AU-SHIRE-AU201400052

PATIENT
  Sex: 0

DRUGS (1)
  1. VPRIV [Suspect]
     Indication: GAUCHER^S DISEASE
     Dosage: UNK, 1X/2WKS
     Route: 041
     Dates: start: 201307

REACTIONS (1)
  - Neoplasm malignant [Unknown]
